FAERS Safety Report 19272564 (Version 2)
Quarter: 2021Q3

REPORT INFORMATION
  Report Type: Report from Study
  Country: DE (occurrence: DE)
  Receive Date: 20210518
  Receipt Date: 20210928
  Transmission Date: 20211014
  Serious: Yes (Hospitalization)
  Sender: FDA-Public Use
  Company Number: DE-TAKEDA-2021TUS029081

PATIENT
  Sex: Female

DRUGS (13)
  1. COAGULATION FACTOR VIII (PORCINE, RECOMBINANT) [Suspect]
     Active Substance: ANTIHEMOPHILIC FACTOR PORCINE, B-DOMAIN TRUNCATED RECOMBINANT
     Dosage: 42 INTERNATIONAL UNIT/KILOGRAM
     Route: 065
     Dates: start: 20210125, end: 20210125
  2. HYDROCHLOROTHIAZIDE. [Concomitant]
     Active Substance: HYDROCHLOROTHIAZIDE
     Indication: HYPERTENSION
     Dosage: 25 MILLIGRAM
     Route: 065
  3. COAGULATION FACTOR VIII (PORCINE, RECOMBINANT) [Suspect]
     Active Substance: ANTIHEMOPHILIC FACTOR PORCINE, B-DOMAIN TRUNCATED RECOMBINANT
     Dosage: 42 INTERNATIONAL UNIT/KILOGRAM
     Route: 065
     Dates: start: 20210120, end: 20210120
  4. METAMIZOL [Concomitant]
     Active Substance: METAMIZOLE SODIUM
     Indication: PROCEDURAL PAIN
     Dosage: 500 MILLIGRAM
     Route: 065
     Dates: start: 20210515, end: 20210515
  5. COAGULATION FACTOR VIII (PORCINE, RECOMBINANT) [Suspect]
     Active Substance: ANTIHEMOPHILIC FACTOR PORCINE, B-DOMAIN TRUNCATED RECOMBINANT
     Indication: ACQUIRED HAEMOPHILIA
     Dosage: UNK
     Route: 065
  6. AMPHOTERICIN B. [Concomitant]
     Active Substance: AMPHOTERICIN B
     Indication: OESOPHAGITIS
     Dosage: UNK
     Route: 065
     Dates: start: 20210121
  7. PREDNISOLONE. [Concomitant]
     Active Substance: PREDNISOLONE
     Indication: ACQUIRED HAEMOPHILIA
     Dosage: 15 MILLIGRAM
     Route: 065
     Dates: start: 20210315
  8. SIMVASTATIN. [Concomitant]
     Active Substance: SIMVASTATIN
     Indication: CORONARY ARTERY DISEASE
     Dosage: 40 MILLIGRAM
     Route: 065
  9. COAGULATION FACTOR VIII (PORCINE, RECOMBINANT) [Suspect]
     Active Substance: ANTIHEMOPHILIC FACTOR PORCINE, B-DOMAIN TRUNCATED RECOMBINANT
     Dosage: 42 INTERNATIONAL UNIT/KILOGRAM
     Route: 065
     Dates: start: 20210125, end: 20210125
  10. COAGULATION FACTOR VIII (PORCINE, RECOMBINANT) [Suspect]
     Active Substance: ANTIHEMOPHILIC FACTOR PORCINE, B-DOMAIN TRUNCATED RECOMBINANT
     Indication: ACQUIRED HAEMOPHILIA
     Dosage: UNK
     Route: 065
  11. PANTOPRAZOL [Concomitant]
     Active Substance: PANTOPRAZOLE SODIUM
     Indication: PROPHYLAXIS
     Dosage: 40 MILLIGRAM
     Route: 065
     Dates: start: 20210118
  12. COAGULATION FACTOR VIII (PORCINE, RECOMBINANT) [Suspect]
     Active Substance: ANTIHEMOPHILIC FACTOR PORCINE, B-DOMAIN TRUNCATED RECOMBINANT
     Dosage: 42 INTERNATIONAL UNIT/KILOGRAM
     Route: 065
     Dates: start: 20210120, end: 20210120
  13. RAMIPRIL. [Concomitant]
     Active Substance: RAMIPRIL
     Dosage: 5 MILLIGRAM
     Route: 065

REACTIONS (2)
  - Cholelithiasis [Recovered/Resolved]
  - Jaundice [Recovering/Resolving]

NARRATIVE: CASE EVENT DATE: 20210501
